FAERS Safety Report 8503979-1 (Version None)
Quarter: 2012Q3

REPORT INFORMATION
  Report Type: 
  Country: None (occurrence: None)
  Receive Date: 20120711
  Receipt Date: 20120703
  Transmission Date: 20120928
  Serious: Yes (Hospitalization, Disabling, Other)
  Sender: FDA-Public Use
  Company Number: US-009507513-1202USA02463

PATIENT

DRUGS (8)
  1. FOSAMAX PLUS D [Suspect]
     Indication: OSTEOPOROSIS
     Dosage: 70 MG, QW
     Route: 048
     Dates: start: 20070721, end: 20100301
  2. FOSAMAX [Suspect]
     Indication: OSTEOPENIA
     Dosage: 70 MG, QW
     Route: 048
     Dates: start: 19981020, end: 20020930
  3. CALCIUM (UNSPECIFIED) [Concomitant]
     Indication: OSTEOPOROSIS
  4. FOSAMAX [Suspect]
     Indication: OSTEOPOROSIS
     Dosage: 10 MG, QW
     Route: 048
     Dates: start: 19981020, end: 20001017
  5. FOSAMAX [Suspect]
     Dosage: 70 MG, UNK
     Route: 048
     Dates: start: 20030827, end: 20060601
  6. FOSAMAX PLUS D [Suspect]
     Indication: OSTEOPENIA
  7. NASONEX [Concomitant]
     Route: 055
     Dates: start: 20100728
  8. FOSAMAX [Suspect]
     Dosage: 100 MG, QW
     Route: 048

REACTIONS (48)
  - ROTATOR CUFF SYNDROME [None]
  - FIBROCYSTIC BREAST DISEASE [None]
  - ATROPHIC VULVOVAGINITIS [None]
  - MUSCULOSKELETAL STIFFNESS [None]
  - EXOSTOSIS [None]
  - DERMATITIS [None]
  - HYPOKINESIA [None]
  - MYOCARDIAL ISCHAEMIA [None]
  - URINARY TRACT INFECTION [None]
  - TRICUSPID VALVE INCOMPETENCE [None]
  - HYPOTENSION [None]
  - LOW TURNOVER OSTEOPATHY [None]
  - IMPAIRED HEALING [None]
  - ARTHRALGIA [None]
  - LOW DENSITY LIPOPROTEIN INCREASED [None]
  - ARTHROPATHY [None]
  - DRUG INTOLERANCE [None]
  - HYPERCHOLESTEROLAEMIA [None]
  - GASTROOESOPHAGEAL REFLUX DISEASE [None]
  - ANXIETY [None]
  - CARDIAC MURMUR [None]
  - OSTEOARTHRITIS [None]
  - MITRAL VALVE INCOMPETENCE [None]
  - CARDIOVASCULAR DISORDER [None]
  - GAIT DISTURBANCE [None]
  - PALPITATIONS [None]
  - FALL [None]
  - DYSURIA [None]
  - HEART SOUNDS ABNORMAL [None]
  - AORTIC ARTERIOSCLEROSIS [None]
  - TONSILLAR DISORDER [None]
  - ATRIAL FIBRILLATION [None]
  - DEPRESSION [None]
  - DRUG INEFFECTIVE [None]
  - THYROID NEOPLASM [None]
  - BLADDER PROLAPSE [None]
  - MITRAL VALVE CALCIFICATION [None]
  - INGROWING NAIL [None]
  - CHEST PAIN [None]
  - DIZZINESS [None]
  - HYPERTENSION [None]
  - POOR QUALITY SLEEP [None]
  - BURSITIS [None]
  - ACUTE SINUSITIS [None]
  - ARTERIOSCLEROSIS [None]
  - OVERDOSE [None]
  - FEMUR FRACTURE [None]
  - VISION BLURRED [None]
